FAERS Safety Report 7860270-4 (Version None)
Quarter: 2011Q4

REPORT INFORMATION
  Report Type: 
  Country: None (occurrence: None)
  Receive Date: 20111027
  Receipt Date: 20111025
  Transmission Date: 20120403
  Serious: Yes (Other)
  Sender: FDA-Public Use
  Company Number: US-B.I. PHARMACEUTICALS,INC./RIDGEFIELD-2011-BP-19422BP

PATIENT
  Sex: Male

DRUGS (7)
  1. LORATADINE [Concomitant]
     Indication: ASTHMA
     Dosage: 10 MG
     Route: 048
  2. SYMBICORT [Concomitant]
     Indication: ASTHMA
     Route: 048
  3. ZOCOR [Concomitant]
     Indication: BLOOD CHOLESTEROL INCREASED
     Dosage: 40 MG
     Route: 048
  4. XOPENEX [Concomitant]
     Indication: ASTHMA
     Route: 048
  5. SPIRIVA [Suspect]
     Indication: CHRONIC OBSTRUCTIVE PULMONARY DISEASE
     Dosage: 18 MCG
     Route: 055
     Dates: start: 20110101, end: 20110601
  6. LEXOL [Concomitant]
     Indication: HYPOTHYROIDISM
     Dosage: 0.1 MG
     Route: 048
  7. SPIRIVA [Suspect]
     Dosage: 18 MCG
     Route: 055
     Dates: start: 20110806

REACTIONS (3)
  - BLADDER DISORDER [None]
  - SMALL CELL LUNG CANCER STAGE UNSPECIFIED [None]
  - URINARY RETENTION [None]
